FAERS Safety Report 6902318-7 (Version None)
Quarter: 2010Q3

REPORT INFORMATION
  Report Type: 
  Country: None (occurrence: None)
  Receive Date: 20100803
  Receipt Date: 20080511
  Transmission Date: 20110219
  Serious: No
  Sender: FDA-Public Use
  Company Number: US-PFIZER INC-2008042137

PATIENT
  Sex: Female
  Weight: 133.8 kg

DRUGS (4)
  1. LYRICA [Suspect]
     Indication: FIBROMYALGIA
     Dates: start: 20071101, end: 20080511
  2. PRANDIN [Concomitant]
  3. ACTOS [Concomitant]
  4. LOTREL [Concomitant]

REACTIONS (1)
  - RASH [None]
